FAERS Safety Report 8693475 (Version 2)
Quarter: 2012Q4

REPORT INFORMATION
  Report Type: Report from Study
  Country: RS (occurrence: RS)
  Receive Date: 20120730
  Receipt Date: 20121114
  Transmission Date: 20130627
  Serious: Yes (Death)
  Sender: FDA-Public Use
  Company Number: RS-ROCHE-1090921

PATIENT
  Age: 72 Year
  Sex: Male
  Weight: 65 kg

DRUGS (3)
  1. TENECTEPLASE [Suspect]
     Indication: ACUTE MYOCARDIAL INFARCTION
     Route: 050
  2. ENOXAPARIN [Concomitant]
     Indication: ACUTE MYOCARDIAL INFARCTION
     Route: 040
  3. CLOPIDOGREL [Concomitant]
     Indication: ACUTE MYOCARDIAL INFARCTION
     Route: 048

REACTIONS (3)
  - Myocardial infarction [Fatal]
  - Cardiogenic shock [Fatal]
  - Thrombosis in device [Fatal]
